FAERS Safety Report 9718471 (Version 1)
Quarter: 2013Q4

REPORT INFORMATION
  Report Type: Spontaneous
  Country: DE (occurrence: DE)
  Receive Date: 20131127
  Receipt Date: 20131127
  Transmission Date: 20140711
  Serious: Yes (Hospitalization)
  Sender: FDA-Public Use
  Company Number: DE-PFIZER INC-2013332266

PATIENT
  Age: 57 Year
  Sex: Female

DRUGS (2)
  1. VENLAFAXINE HCL [Suspect]
     Dosage: 75 MG, DAILY
     Route: 048
     Dates: start: 20130406, end: 20130408
  2. MIRTAZAPINE [Suspect]
     Dosage: 15 MG, DAILY
     Route: 048
     Dates: start: 20130201, end: 20130408

REACTIONS (3)
  - Pain in extremity [Recovered/Resolved]
  - Oedema peripheral [Recovered/Resolved]
  - Eyelid oedema [Recovered/Resolved]
